FAERS Safety Report 18359342 (Version 2)
Quarter: 2021Q1

REPORT INFORMATION
  Report Type: Spontaneous
  Country: US (occurrence: US)
  Receive Date: 20201008
  Receipt Date: 20210308
  Transmission Date: 20210419
  Serious: Yes (Other)
  Sender: FDA-Public Use
  Company Number: US-SA-2020SA275147

PATIENT
  Age: 56 Year
  Sex: Male

DRUGS (1)
  1. ZANTAC [Suspect]
     Active Substance: RANITIDINE HYDROCHLORIDE
     Indication: GASTROOESOPHAGEAL REFLUX DISEASE
     Dosage: UNKNOWN AT THIS TIME
     Dates: start: 201007, end: 201703

REACTIONS (2)
  - Neoplasm malignant [Unknown]
  - Colorectal cancer stage III [Recovering/Resolving]

NARRATIVE: CASE EVENT DATE: 201703
